FAERS Safety Report 6122004-3 (Version None)
Quarter: 2009Q1

REPORT INFORMATION
  Report Type: 
  Country: None (occurrence: None)
  Receive Date: 20090316
  Receipt Date: 20090304
  Transmission Date: 20090719
  Serious: No
  Sender: FDA-Public Use
  Company Number: US025582

PATIENT
  Age: 62 Year
  Sex: Male
  Weight: 77.1115 kg

DRUGS (4)
  1. FENTORA [Suspect]
     Indication: GUILLAIN-BARRE SYNDROME
     Dosage: 800 UG QID PRN BUCCAL
     Route: 002
     Dates: start: 20070801
  2. FENTORA [Suspect]
     Indication: PAIN
     Dosage: 800 UG QID PRN BUCCAL
     Route: 002
     Dates: start: 20070801
  3. ACTIQ [Concomitant]
  4. NEURONTIN [Concomitant]

REACTIONS (4)
  - CONDITION AGGRAVATED [None]
  - DRUG PRESCRIBING ERROR [None]
  - MUSCULOSKELETAL STIFFNESS [None]
  - PAIN [None]
